FAERS Safety Report 4365833-9 (Version None)
Quarter: 2004Q2

REPORT INFORMATION
  Report Type: 
  Country: None (occurrence: None)
  Receive Date: 20040521
  Receipt Date: 20040506
  Transmission Date: 20050107
  Serious: Yes (Life-Threatening)
  Sender: FDA-Public Use
  Company Number: S04-AUS-01944-02

PATIENT

DRUGS (1)
  1. CERVIDIL [Suspect]
     Dosage: 10 MG ONCE VG
     Route: 067
     Dates: start: 20040331, end: 20040401

REACTIONS (5)
  - APGAR SCORE LOW [None]
  - DRUG EXPOSURE DURING PREGNANCY [None]
  - FOETAL HEART RATE DECELERATION [None]
  - NEONATAL RESPIRATORY DEPRESSION [None]
  - PREMATURE SEPARATION OF PLACENTA [None]
